FAERS Safety Report 13396841 (Version 1)
Quarter: 2017Q2

REPORT INFORMATION
  Report Type: Spontaneous
  Country: US (occurrence: US)
  Receive Date: 20170403
  Receipt Date: 20170403
  Transmission Date: 20170830
  Serious: Yes (Life-Threatening, Other)
  Sender: FDA-Public Use
  Company Number: US-SA-2017SA004946

PATIENT
  Age: 11 Year
  Sex: Male

DRUGS (24)
  1. VINCRISTINE [Suspect]
     Active Substance: VINCRISTINE
     Indication: METASTASES TO LUNG
     Route: 065
  2. CISPLATIN. [Concomitant]
     Active Substance: CISPLATIN
     Indication: METASTASES TO LUNG
     Dosage: 9 CYCLES OF CHEMOTHERAPY
  3. GANCICLOVIR. [Concomitant]
     Active Substance: GANCICLOVIR
     Indication: INFECTION PROPHYLAXIS
  4. FLUCONAZOLE. [Concomitant]
     Active Substance: FLUCONAZOLE
     Indication: ANTIBIOTIC PROPHYLAXIS
  5. FLUDARABINE PHOSPHATE. [Suspect]
     Active Substance: FLUDARABINE PHOSPHATE
     Indication: BONE MARROW CONDITIONING REGIMEN
     Route: 065
  6. 5-FU [Concomitant]
     Active Substance: FLUOROURACIL
     Indication: CHEMOTHERAPY
     Dosage: 9 CYCLES OF CHEMOTHERAPY
  7. 5-FU [Concomitant]
     Active Substance: FLUOROURACIL
     Indication: METASTASES TO LUNG
     Dosage: 9 CYCLES OF CHEMOTHERAPY
  8. DOXORUBICIN [Concomitant]
     Active Substance: DOXORUBICIN
     Indication: METASTASES TO LUNG
     Dosage: CUMULATIVE DOXORUBICIN DOSE OF 300 MG/M2
  9. TMP-SMX [Concomitant]
     Active Substance: SULFAMETHOXAZOLE\TRIMETHOPRIM
     Indication: PROPHYLAXIS
  10. ALEMTUZUMAB [Suspect]
     Active Substance: ALEMTUZUMAB
     Indication: BONE MARROW CONDITIONING REGIMEN
     Route: 065
  11. IRINOTECAN [Suspect]
     Active Substance: IRINOTECAN
     Indication: HEPATOCELLULAR CARCINOMA
     Route: 065
  12. TRIMETHOPRIM/SULFAMETHOXAZOLE [Suspect]
     Active Substance: SULFAMETHOXAZOLE\TRIMETHOPRIM
     Indication: INFECTION PROPHYLAXIS
     Route: 065
  13. CISPLATIN. [Concomitant]
     Active Substance: CISPLATIN
     Indication: CHEMOTHERAPY
     Dosage: 9 CYCLES OF CHEMOTHERAPY
  14. CISPLATIN. [Concomitant]
     Active Substance: CISPLATIN
     Indication: HEPATOCELLULAR CARCINOMA
     Dosage: 9 CYCLES OF CHEMOTHERAPY
  15. SORAFENIB [Concomitant]
     Active Substance: SORAFENIB
     Indication: HEPATOCELLULAR CARCINOMA
  16. BEVACIZUMAB [Suspect]
     Active Substance: BEVACIZUMAB
     Indication: HEPATOCELLULAR CARCINOMA
     Route: 065
  17. TACROLIMUS. [Concomitant]
     Active Substance: TACROLIMUS
     Indication: IMMUNOSUPPRESSION
  18. CYTOGAM [Concomitant]
     Active Substance: HUMAN CYTOMEGALOVIRUS IMMUNE GLOBULIN
     Indication: CYTOMEGALOVIRUS TEST POSITIVE
     Dosage: DOSAGE TEXT: ON DAY +20
     Route: 042
  19. VINCRISTINE [Suspect]
     Active Substance: VINCRISTINE
     Indication: HEPATOCELLULAR CARCINOMA
     Route: 065
  20. 5-FU [Concomitant]
     Active Substance: FLUOROURACIL
     Indication: HEPATOCELLULAR CARCINOMA
     Dosage: 9 CYCLES OF CHEMOTHERAPY
  21. DOXORUBICIN [Concomitant]
     Active Substance: DOXORUBICIN
     Indication: HEPATOCELLULAR CARCINOMA
     Dosage: CUMULATIVE DOXORUBICIN DOSE OF 300 MG/M2
  22. DOXORUBICIN [Concomitant]
     Active Substance: DOXORUBICIN
     Indication: CHEMOTHERAPY
     Dosage: CUMULATIVE DOXORUBICIN DOSE OF 300 MG/M2
  23. PREDNISONE. [Concomitant]
     Active Substance: PREDNISONE
     Indication: IMMUNOSUPPRESSION
  24. BUSULFAN. [Concomitant]
     Active Substance: BUSULFAN
     Indication: BONE MARROW CONDITIONING REGIMEN

REACTIONS (8)
  - Hepatic neoplasm [Unknown]
  - Bone marrow failure [Unknown]
  - Venoocclusive liver disease [None]
  - Multiple organ dysfunction syndrome [None]
  - Off label use [Unknown]
  - Sepsis [None]
  - Respiratory failure [None]
  - Therapy non-responder [None]
